FAERS Safety Report 23029003 (Version 1)
Quarter: 2023Q4

REPORT INFORMATION
  Report Type: Spontaneous
  Country: CN (occurrence: CN)
  Receive Date: 20231004
  Receipt Date: 20231004
  Transmission Date: 20240110
  Serious: Yes (Other)
  Sender: FDA-Public Use
  Company Number: CN-AMGEN-CHNSP2023172649

PATIENT

DRUGS (1)
  1. XGEVA [Suspect]
     Active Substance: DENOSUMAB
     Indication: Product used for unknown indication
     Dosage: 120 MILLIGRAM
     Route: 058

REACTIONS (35)
  - Adverse event [Unknown]
  - Lumbar vertebral fracture [Unknown]
  - Scrotal injury [Unknown]
  - Syncope [Unknown]
  - Hyperkalaemia [Unknown]
  - Ectopic pregnancy [Unknown]
  - Blood parathyroid hormone increased [Unknown]
  - Drug specific antibody [Unknown]
  - Alanine aminotransferase increased [Unknown]
  - Urinary tract infection [Unknown]
  - Aspartate aminotransferase increased [Unknown]
  - Hypertriglyceridaemia [Unknown]
  - Haematuria [Unknown]
  - Proteinuria [Unknown]
  - Blood bilirubin increased [Unknown]
  - White blood cell count increased [Unknown]
  - Neutrophil count increased [Unknown]
  - Hyperuricaemia [Unknown]
  - Hyperglycaemia [Unknown]
  - Herpes zoster [Unknown]
  - Supraventricular extrasystoles [Unknown]
  - Ventricular extrasystoles [Unknown]
  - Pyrexia [Unknown]
  - Rhinorrhoea [Unknown]
  - Hypoalbuminaemia [Unknown]
  - White blood cell count decreased [Unknown]
  - Blood creatinine increased [Unknown]
  - Neutrophil count decreased [Unknown]
  - Blood thyroid stimulating hormone decreased [Unknown]
  - Tri-iodothyronine free increased [Unknown]
  - Pruritus [Unknown]
  - Anaemia [Unknown]
  - Headache [Unknown]
  - Hypocalcaemia [Unknown]
  - Hypophosphataemia [Unknown]
